FAERS Safety Report 9324395 (Version 1)
Quarter: 2013Q2

REPORT INFORMATION
  Report Type: Spontaneous
  Country: CA (occurrence: CA)
  Receive Date: 20130603
  Receipt Date: 20130603
  Transmission Date: 20140414
  Serious: Yes (Death)
  Sender: FDA-Public Use
  Company Number: CA-TEVA-409487USA

PATIENT
  Age: 37 Year
  Sex: Male
  Weight: 79 kg

DRUGS (2)
  1. CITALOPRAM [Suspect]
     Dosage: 20 MILLIGRAM DAILY;
     Route: 065
  2. DIPHENHYDRAMINE [Suspect]
     Route: 065

REACTIONS (1)
  - Overdose [Fatal]
